APPROVED DRUG PRODUCT: GLIPIZIDE
Active Ingredient: GLIPIZIDE
Strength: 10MG
Dosage Form/Route: TABLET;ORAL
Application: A074226 | Product #002 | TE Code: AB
Applicant: AUROBINDO PHARMA USA INC
Approved: May 10, 1994 | RLD: No | RS: No | Type: RX